FAERS Safety Report 16373658 (Version 1)
Quarter: 2019Q2

REPORT INFORMATION
  Report Type: Spontaneous
  Country: US (occurrence: US)
  Receive Date: 20190530
  Receipt Date: 20190530
  Transmission Date: 20190711
  Serious: No
  Sender: FDA-Public Use
  Company Number: US-SA-2019SA145326

PATIENT
  Age: 10 Year
  Sex: Male

DRUGS (2)
  1. CEREZYME [Suspect]
     Active Substance: IMIGLUCERASE
     Dosage: 1600 IU
     Route: 041
     Dates: start: 20190523
  2. CEREZYME [Suspect]
     Active Substance: IMIGLUCERASE
     Dosage: 1200 IU
     Route: 041
     Dates: start: 20160328

REACTIONS (1)
  - Device issue [Unknown]

NARRATIVE: CASE EVENT DATE: 20190503
